FAERS Safety Report 21083448 (Version 1)
Quarter: 2022Q3

REPORT INFORMATION
  Report Type: Spontaneous
  Country: GB (occurrence: None)
  Receive Date: 20220714
  Receipt Date: 20220714
  Transmission Date: 20221027
  Serious: Yes (Hospitalization)
  Sender: FDA-Public Use
  Company Number: GB-ROCHE-3139806

PATIENT
  Age: 59 Year
  Sex: Male

DRUGS (1)
  1. TOCILIZUMAB [Suspect]
     Active Substance: TOCILIZUMAB
     Indication: Product used for unknown indication
     Dosage: DRUG DOSAGE FORM: 120
     Route: 065
     Dates: start: 20220705

REACTIONS (1)
  - Large intestine perforation [Recovering/Resolving]

NARRATIVE: CASE EVENT DATE: 20220705
